FAERS Safety Report 23283720 (Version 2)
Quarter: 2023Q4

REPORT INFORMATION
  Report Type: Spontaneous
  Country: ES (occurrence: ES)
  Receive Date: 20231211
  Receipt Date: 20231228
  Transmission Date: 20240110
  Serious: Yes (Hospitalization)
  Sender: FDA-Public Use
  Company Number: ES-OTSUKA-2023_028547

PATIENT
  Age: 21 Year
  Sex: Female
  Weight: 54.8 kg

DRUGS (12)
  1. ARIPIPRAZOLE [Suspect]
     Active Substance: ARIPIPRAZOLE
     Indication: Psychotic disorder
     Dosage: UNK
     Route: 065
  2. ARIPIPRAZOLE [Suspect]
     Active Substance: ARIPIPRAZOLE
     Indication: Antipsychotic therapy
  3. AMISULPRIDE [Suspect]
     Active Substance: AMISULPRIDE
     Indication: Neuropsychological symptoms
     Dosage: 1200 MILLIGRAM, ONCE A DAY
     Route: 065
  4. CLOZAPINE [Suspect]
     Active Substance: CLOZAPINE
     Indication: Antipsychotic therapy
     Dosage: 25 MILLIGRAM, ONCE A DAY
     Route: 065
  5. CLOZAPINE [Suspect]
     Active Substance: CLOZAPINE
     Indication: Neuropsychological symptoms
  6. LAMOTRIGINE [Suspect]
     Active Substance: LAMOTRIGINE
     Indication: Antipsychotic therapy
     Dosage: 75 MILLIGRAM, ONCE A DAY
     Route: 065
  7. OLANZAPINE [Suspect]
     Active Substance: OLANZAPINE
     Indication: Antipsychotic therapy
     Dosage: 20 MILLIGRAM, ONCE A DAY
     Route: 065
  8. OLANZAPINE [Suspect]
     Active Substance: OLANZAPINE
     Dosage: UNK, UPTO 10 MG PER DAY
     Route: 065
  9. RISPERIDONE [Suspect]
     Active Substance: RISPERIDONE
     Indication: Antipsychotic therapy
     Dosage: UNK
     Route: 065
  10. VALPROATE SODIUM [Suspect]
     Active Substance: VALPROATE SODIUM
     Indication: Neuropsychological symptoms
     Dosage: 40 MILLIGRAM, ONCE A DAY
     Route: 065
  11. CLONAZEPAM [Suspect]
     Active Substance: CLONAZEPAM
     Indication: Neuropsychological symptoms
     Dosage: 8 MILLIGRAM, ONCE A DAY
     Route: 065
  12. LITHIUM [Concomitant]
     Active Substance: LITHIUM
     Indication: Antipsychotic therapy
     Dosage: 800 MILLIGRAM, ONCE A DAY
     Route: 065

REACTIONS (13)
  - Drug ineffective [Recovered/Resolved]
  - Oedema [Unknown]
  - Gait disturbance [Unknown]
  - Discomfort [Recovered/Resolved]
  - Rash [Recovered/Resolved]
  - Galactorrhoea [Unknown]
  - Nystagmus [Unknown]
  - Deja vu [Recovered/Resolved]
  - Hypersomnia [Recovered/Resolved]
  - Salivary hypersecretion [Recovered/Resolved]
  - Product use in unapproved indication [Unknown]
  - Therapeutic response decreased [Unknown]
  - Drug intolerance [Unknown]
